FAERS Safety Report 5893884-1 (Version None)
Quarter: 2008Q3

REPORT INFORMATION
  Report Type: 
  Country: None (occurrence: None)
  Receive Date: 20080923
  Receipt Date: 20080618
  Transmission Date: 20090109
  Serious: No
  Sender: FDA-Public Use
  Company Number: US-ASTRAZENECA-2007UW27334

PATIENT
  Age: 421 Month
  Sex: Female
  Weight: 80 kg

DRUGS (1)
  1. SEROQUEL [Suspect]
     Indication: DEPRESSION
     Dosage: VARIOUS DOSES INCLUDING BUT NOT LIMITED TO 25 MG, 100 MG, AND 200 MG
     Dates: start: 20041201, end: 20051001

REACTIONS (2)
  - DIABETES MELLITUS [None]
  - FURUNCLE [None]
